FAERS Safety Report 8217513-7 (Version None)
Quarter: 2012Q1

REPORT INFORMATION
  Report Type: 
  Country: None (occurrence: None)
  Receive Date: 20120314
  Receipt Date: 20120229
  Transmission Date: 20120608
  Serious: Yes (Other)
  Sender: FDA-Public Use
  Company Number: 2012HGS-003264

PATIENT
  Age: 55 Year
  Sex: Female
  Weight: 61.2356 kg

DRUGS (15)
  1. BENLYSTA [Suspect]
     Indication: SYSTEMIC LUPUS ERYTHEMATOSUS
     Dosage: 590 MG, 1 IN 14 D, INTRAVENOUS DRIP
     Route: 041
     Dates: start: 20120120, end: 20120120
  2. GABAPENTIN [Concomitant]
  3. LISINOPRIL [Concomitant]
  4. ASPIRIN [Concomitant]
  5. VERAPAMIL ER (VERAPAMIL) (VERAPAMIL) [Concomitant]
  6. METHOTREXATE [Concomitant]
  7. VIMOVO (VMOVO) (NAPROXEN, ESOMEPRAZOLE MAGNESIUM) [Concomitant]
  8. DIAZEPAM [Concomitant]
  9. ADVAIR (SERETIDE) (FLUTICASONE PROPIONATE, SALMETEROL XINAFOATE) [Concomitant]
  10. METANX (METANX) (PYRIDOXINE HYDROCHLORIDE, CALCIUM MEFOLINATE, VTAMIN [Concomitant]
  11. TRAMADOL HCL [Concomitant]
  12. FOLIC ACID [Concomitant]
  13. PLAQUENIL [Concomitant]
  14. TRAZODONE (TRAZODONE) (TRAZODONE) [Concomitant]
  15. VENTOLIN (SALBUTAMOL) (SALBUTAMOL) [Concomitant]

REACTIONS (3)
  - EYELID IRRITATION [None]
  - SUICIDAL IDEATION [None]
  - VISION BLURRED [None]
